FAERS Safety Report 8780132 (Version 1)
Quarter: 2012Q4

REPORT INFORMATION
  Report Type: 
  Country: US (occurrence: None)
  Receive Date: 20120831
  Receipt Date: 20120831
  Transmission Date: 20130627
  Serious: Yes (Hospitalization)
  Sender: FDA-Public Use
  Company Number: None

PATIENT
  Sex: Female
  Weight: 118 kg

DRUGS (4)
  1. BEVACIZUMAB [Suspect]
  2. CARBOPLATIN [Suspect]
  3. CETUXIMAB [Suspect]
  4. PACLITAXEL (TAXOL) [Suspect]

REACTIONS (7)
  - Disease progression [None]
  - Asthenia [None]
  - Diarrhoea [None]
  - Haematochezia [None]
  - Thrombocytopenia [None]
  - Gastric ulcer [None]
  - Cellulitis [None]
